FAERS Safety Report 7088079-2 (Version None)
Quarter: 2010Q4

REPORT INFORMATION
  Report Type: 
  Country: None (occurrence: None)
  Receive Date: 20101108
  Receipt Date: 20101105
  Transmission Date: 20110411
  Serious: Yes (Life-Threatening)
  Sender: FDA-Public Use
  Company Number: IT-SANOFI-AVENTIS-2010SA059257

PATIENT
  Age: 67 Year
  Sex: Female

DRUGS (17)
  1. ELOXATIN [Suspect]
     Route: 041
     Dates: start: 20100301, end: 20100301
  2. ELOXATIN [Suspect]
     Indication: METASTASIS
     Route: 041
     Dates: start: 20100301, end: 20100301
  3. ELOXATIN [Suspect]
     Route: 041
     Dates: start: 20100818, end: 20100818
  4. ELOXATIN [Suspect]
     Route: 041
     Dates: start: 20100818, end: 20100818
  5. FLUOROURACIL [Suspect]
     Route: 040
     Dates: start: 20100301, end: 20100301
  6. FLUOROURACIL [Suspect]
     Indication: METASTASIS
     Route: 040
     Dates: start: 20100301, end: 20100301
  7. FLUOROURACIL [Suspect]
     Route: 041
     Dates: start: 20100301, end: 20100301
  8. FLUOROURACIL [Suspect]
     Route: 041
     Dates: start: 20100301, end: 20100301
  9. FLUOROURACIL [Suspect]
     Route: 040
     Dates: start: 20100818, end: 20100818
  10. FLUOROURACIL [Suspect]
     Route: 040
     Dates: start: 20100818, end: 20100818
  11. FLUOROURACIL [Suspect]
     Route: 041
     Dates: start: 20100818, end: 20100818
  12. FLUOROURACIL [Suspect]
     Route: 041
     Dates: start: 20100818, end: 20100818
  13. LEDERFOLIN [Concomitant]
     Route: 065
     Dates: start: 20100301, end: 20100301
  14. LEDERFOLIN [Concomitant]
     Route: 065
     Dates: start: 20100301, end: 20100301
  15. LEDERFOLIN [Concomitant]
     Route: 065
     Dates: start: 20100818, end: 20100818
  16. LEDERFOLIN [Concomitant]
     Route: 065
     Dates: start: 20100818, end: 20100818
  17. BETA BLOCKING AGENTS [Concomitant]
     Indication: ANGINA PECTORIS
     Route: 065

REACTIONS (7)
  - BLOOD PRESSURE IMMEASURABLE [None]
  - BONE MARROW TOXICITY [None]
  - ERYTHEMA [None]
  - EXTRASYSTOLES [None]
  - MALAISE [None]
  - PARAESTHESIA [None]
  - THROAT TIGHTNESS [None]
